FAERS Safety Report 7817899-9 (Version None)
Quarter: 2011Q4

REPORT INFORMATION
  Report Type: 
  Country: None (occurrence: None)
  Receive Date: 20111017
  Receipt Date: 20111007
  Transmission Date: 20120403
  Serious: Yes (Hospitalization, Other)
  Sender: FDA-Public Use
  Company Number: PHHY2011JP89142

PATIENT
  Age: 17 Year
  Sex: Female

DRUGS (1)
  1. DIPHENHYDRAMINE HCL [Suspect]
     Dosage: 1800 MG, UNK

REACTIONS (15)
  - SEROTONIN SYNDROME [None]
  - HYPERTHERMIA [None]
  - TACHYCARDIA [None]
  - DRUG LEVEL INCREASED [None]
  - INCOHERENT [None]
  - HYPERREFLEXIA [None]
  - DISORIENTATION [None]
  - OVERDOSE [None]
  - HALLUCINATIONS, MIXED [None]
  - DELIRIUM [None]
  - MUSCLE RIGIDITY [None]
  - MYOCLONUS [None]
  - ABNORMAL BEHAVIOUR [None]
  - SUICIDE ATTEMPT [None]
  - HYPERHIDROSIS [None]
